FAERS Safety Report 10440332 (Version 3)
Quarter: 2014Q4

REPORT INFORMATION
  Report Type: Spontaneous
  Country: US (occurrence: US)
  Receive Date: 20140909
  Receipt Date: 20141002
  Transmission Date: 20150528
  Serious: Yes (Death, Hospitalization, Other)
  Sender: FDA-Public Use
  Company Number: US-AMGEN-USASP2014067490

PATIENT
  Sex: Male

DRUGS (1)
  1. ENBREL [Suspect]
     Active Substance: ETANERCEPT
     Indication: RHEUMATOID ARTHRITIS
     Dosage: UNK
     Route: 065

REACTIONS (13)
  - Disorientation [Not Recovered/Not Resolved]
  - Pneumonia [Unknown]
  - Heart valve incompetence [Unknown]
  - Sepsis [Not Recovered/Not Resolved]
  - Oxygen saturation decreased [Not Recovered/Not Resolved]
  - Platelet count decreased [Not Recovered/Not Resolved]
  - Endocarditis [Not Recovered/Not Resolved]
  - Cerebrovascular accident [Unknown]
  - Death [Fatal]
  - Dehydration [Unknown]
  - Mechanical ventilation [Not Recovered/Not Resolved]
  - Renal failure [Unknown]
  - Muscle strain [Unknown]
